FAERS Safety Report 7936032-6 (Version None)
Quarter: 2011Q4

REPORT INFORMATION
  Report Type: 
  Country: None (occurrence: None)
  Receive Date: 20111123
  Receipt Date: 20111116
  Transmission Date: 20120403
  Serious: Yes (Hospitalization)
  Sender: FDA-Public Use
  Company Number: BR-US-EMD SERONO, INC.-7042725

PATIENT
  Sex: Female

DRUGS (11)
  1. OMEPRAZOLE [Concomitant]
  2. ACETAMINOPHEN [Concomitant]
  3. PAROXETINE HCL [Concomitant]
  4. CAPTOPRIL [Concomitant]
  5. HYDROCHLOROTHIAZIDE [Concomitant]
  6. REBIF [Suspect]
     Indication: RELAPSING-REMITTING MULTIPLE SCLEROSIS
     Route: 058
     Dates: start: 20071008
  7. AMYTRIPTYLINE [Concomitant]
  8. METHOTREXATE SODIUM [Concomitant]
  9. AMLODIPINE [Concomitant]
  10. ACETYLSALICYLIC ACID SRT [Concomitant]
  11. METFFORMIN HYDROCHLORIDE [Concomitant]

REACTIONS (7)
  - SPEECH DISORDER [None]
  - SENSATION OF HEAVINESS [None]
  - FATIGUE [None]
  - PAIN [None]
  - BLINDNESS [None]
  - CENTRAL NERVOUS SYSTEM LESION [None]
  - HEADACHE [None]
